FAERS Safety Report 19375262 (Version 3)
Quarter: 2021Q2

REPORT INFORMATION
  Report Type: Spontaneous
  Country: JP (occurrence: JP)
  Receive Date: 20210604
  Receipt Date: 20210621
  Transmission Date: 20210717
  Serious: Yes (Hospitalization, Other)
  Sender: FDA-Public Use
  Company Number: JP-PFIZER INC-2021614000

PATIENT
  Age: 84 Year
  Sex: Female

DRUGS (3)
  1. PREGABALIN PFIZER [Suspect]
     Active Substance: PREGABALIN
     Dosage: 75 MG, 2X/DAY IN THE MORNING AND EVENING
     Route: 048
  2. LYRICA [Suspect]
     Active Substance: PREGABALIN
     Indication: FACIAL PAIN
     Dosage: UNK
     Route: 048
  3. PREGABALIN PFIZER [Suspect]
     Active Substance: PREGABALIN
     Indication: FACIAL PAIN
     Dosage: 25 MG, 1X/DAY
     Route: 048
     Dates: start: 202102

REACTIONS (11)
  - Drooling [Unknown]
  - Hypoaesthesia [Unknown]
  - Back pain [Unknown]
  - Spinal fracture [Unknown]
  - Aggression [Unknown]
  - Drug ineffective [Unknown]
  - Dysarthria [Not Recovered/Not Resolved]
  - Dizziness [Unknown]
  - Tongue movement disturbance [Not Recovered/Not Resolved]
  - Fall [Unknown]
  - Dysphagia [Unknown]

NARRATIVE: CASE EVENT DATE: 20210526
